FAERS Safety Report 9814283 (Version 1)
Quarter: 2014Q1

REPORT INFORMATION
  Report Type: Spontaneous
  Country: GB (occurrence: GB)
  Receive Date: 20140113
  Receipt Date: 20140113
  Transmission Date: 20141002
  Serious: Yes (Other)
  Sender: FDA-Public Use
  Company Number: PHHY2014GB001789

PATIENT
  Age: 67 Year
  Sex: Male

DRUGS (2)
  1. OLANZAPINE [Suspect]
     Dosage: 1 DF, UNKNOWN
     Route: 065
  2. PROZAC [Suspect]
     Dosage: 1 DF, UNKNOWN
     Route: 065

REACTIONS (3)
  - Crohn^s disease [Unknown]
  - Depression [Unknown]
  - Drug ineffective [Unknown]
